FAERS Safety Report 8771425 (Version 2)
Quarter: 2013Q1

REPORT INFORMATION
  Report Type: Not Available
  Country: FR (occurrence: FR)
  Receive Date: 20120906
  Receipt Date: 20130123
  Transmission Date: 20140127
  Serious: Yes (Other)
  Sender: FDA-Public Use
  Company Number: FR-ASTELLAS-2012EU006357

PATIENT
  Sex: Male

DRUGS (16)
  1. PROGRAF [Suspect]
     Indication: RENAL TRANSPLANT
     Dosage: UNK
     Route: 065
     Dates: start: 201104
  2. PROGRAF [Interacting]
     Dosage: 0.3 MG, UNKNOWN/D
     Route: 065
     Dates: start: 20111231
  3. PROGRAF [Interacting]
     Dosage: 0.2 MG, UNKNOWN/D
     Route: 065
     Dates: start: 20120101
  4. PROGRAF [Interacting]
     Dosage: 0.5 MG, UNKNOWN/D
     Route: 065
     Dates: start: 20120104
  5. VFEND [Interacting]
     Indication: RESPIRATORY TRACT INFECTION
     Dosage: 400 MG, UID/QD
     Route: 048
     Dates: start: 20111228
  6. VFEND [Interacting]
     Dosage: 200 MG, BID
     Route: 048
     Dates: start: 20111229, end: 20120102
  7. TAZOCILLINE [Concomitant]
     Indication: RESPIRATORY DISORDER
     Dosage: UNK
     Route: 065
  8. CELLCEPT                           /01275102/ [Concomitant]
     Indication: RENAL TRANSPLANT
     Dosage: 750 MG, BID
     Route: 065
  9. PREVISCAN                          /00261401/ [Concomitant]
     Dosage: UNK
     Route: 065
  10. INEXIUM /01479302/ [Concomitant]
     Dosage: 20 MG, UNKNOWN/D
     Route: 048
  11. SECTRAL [Concomitant]
     Dosage: 200 MG, UNKNOWN/D
     Route: 065
  12. NOVONORM [Concomitant]
     Dosage: UNK
     Route: 065
  13. STILNOX [Concomitant]
     Dosage: 10 MG, UID/QD
     Route: 048
  14. ROVALCYTE [Concomitant]
     Dosage: 450 MG, QOD
     Route: 065
  15. TAHOR [Concomitant]
     Dosage: 10 MG, UID/QD
     Route: 065
  16. BACTRIM [Concomitant]
     Dosage: 1 DF, UNKNOWN/D
     Route: 048

REACTIONS (3)
  - Toxicity to various agents [Recovered/Resolved]
  - Drug interaction [Recovered/Resolved]
  - Hallucination, visual [Recovered/Resolved]
